FAERS Safety Report 17884333 (Version 1)
Quarter: 2020Q2

REPORT INFORMATION
  Report Type: Spontaneous
  Country: US (occurrence: US)
  Receive Date: 20200611
  Receipt Date: 20200611
  Transmission Date: 20200714
  Serious: No
  Sender: FDA-Public Use
  Company Number: None

PATIENT
  Age: 41 Year
  Sex: Female
  Weight: 62.1 kg

DRUGS (8)
  1. NP THYROID [Suspect]
     Active Substance: LEVOTHYROXINE\LIOTHYRONINE
     Indication: HYPOTHYROIDISM
     Dosage: ?          QUANTITY:1 TABLET(S);?
     Route: 048
     Dates: start: 20200603
  2. ZINC. [Concomitant]
     Active Substance: ZINC
  3. VITAMIN D3 [Concomitant]
     Active Substance: CHOLECALCIFEROL
  4. VITAMIN K2 [Concomitant]
     Active Substance: MENAQUINONE 6
  5. VITAMIN C [Concomitant]
     Active Substance: ASCORBIC ACID
  6. ZYRTEC [Concomitant]
     Active Substance: CETIRIZINE HYDROCHLORIDE
  7. NP THYROID [Concomitant]
     Active Substance: LEVOTHYROXINE\LIOTHYRONINE
  8. DIM [Concomitant]

REACTIONS (6)
  - Fatigue [None]
  - Temperature intolerance [None]
  - Product quality issue [None]
  - Circadian rhythm sleep disorder [None]
  - Nervousness [None]
  - Heart rate increased [None]

NARRATIVE: CASE EVENT DATE: 20200608
